FAERS Safety Report 19475021 (Version 1)
Quarter: 2021Q2

REPORT INFORMATION
  Report Type: Spontaneous
  Country: US (occurrence: US)
  Receive Date: 20210629
  Receipt Date: 20210629
  Transmission Date: 20210717
  Serious: No
  Sender: FDA-Public Use
  Company Number: US-SA-2021SA212130

PATIENT
  Age: 3 Year
  Sex: Female

DRUGS (1)
  1. LUMIZYME [Suspect]
     Active Substance: ALGLUCOSIDASE ALFA
     Indication: GLYCOGEN STORAGE DISEASE TYPE II
     Dosage: 200 MG, QW
     Route: 041

REACTIONS (3)
  - Inappropriate schedule of product administration [Unknown]
  - Feeling abnormal [Unknown]
  - Irritability [Unknown]
